FAERS Safety Report 4967885-1 (Version None)
Quarter: 2006Q2

REPORT INFORMATION
  Report Type: 
  Country: None (occurrence: None)
  Receive Date: 20060410
  Receipt Date: 20060331
  Transmission Date: 20061013
  Serious: Yes (Hospitalization)
  Sender: FDA-Public Use
  Company Number: NO-MERCK-0603NOR00026

PATIENT
  Age: 44 Year
  Sex: Female

DRUGS (4)
  1. VIOXX [Suspect]
     Indication: ANKYLOSING SPONDYLITIS
     Route: 048
     Dates: start: 20021012, end: 20030121
  2. ZOPICLONE [Concomitant]
     Indication: INSOMNIA
     Route: 048
  3. IBUPROFEN [Concomitant]
     Indication: ANKYLOSING SPONDYLITIS
     Route: 048
  4. ACETAMINOPHEN AND CODEINE PHOSPHATE [Concomitant]
     Route: 065

REACTIONS (2)
  - INTRACRANIAL ANEURYSM [None]
  - SUBARACHNOID HAEMORRHAGE [None]
